FAERS Safety Report 21363046 (Version 2)
Quarter: 2022Q4

REPORT INFORMATION
  Report Type: Spontaneous
  Country: US (occurrence: US)
  Receive Date: 20220922
  Receipt Date: 20221103
  Transmission Date: 20230113
  Serious: No
  Sender: FDA-Public Use
  Company Number: US-PHARMAESSENTIA CORPORATION-US-2022-PEC-000690

PATIENT

DRUGS (2)
  1. BESREMI [Suspect]
     Active Substance: ROPEGINTERFERON ALFA-2B-NJFT
     Indication: Polycythaemia vera
     Dosage: 100 MCG, Q2W
     Route: 058
     Dates: start: 20220606
  2. BESREMI [Suspect]
     Active Substance: ROPEGINTERFERON ALFA-2B-NJFT
     Dosage: UNK
     Route: 058

REACTIONS (6)
  - Drug ineffective [Unknown]
  - Haematocrit increased [Recovering/Resolving]
  - Platelet count increased [Recovering/Resolving]
  - Laboratory test abnormal [Not Recovered/Not Resolved]
  - Bone pain [Unknown]
  - Anaemia [Unknown]
